FAERS Safety Report 13627391 (Version 2)
Quarter: 2017Q3

REPORT INFORMATION
  Report Type: Spontaneous
  Country: FR (occurrence: FR)
  Receive Date: 20170608
  Receipt Date: 20170724
  Transmission Date: 20171127
  Serious: Yes (Hospitalization)
  Sender: FDA-Public Use
  Company Number: FR-PFIZER INC-2017242890

PATIENT
  Age: 3 Year
  Sex: Female
  Weight: 14 kg

DRUGS (4)
  1. LEVOTONINE [Suspect]
     Active Substance: OXITRIPTAN
     Indication: NEUROTRANSMITTER LEVEL ALTERED
     Dosage: UNK
  2. LEDERFOLINE [Concomitant]
     Active Substance: LEUCOVORIN CALCIUM
     Indication: NEUROTRANSMITTER LEVEL ALTERED
     Dosage: 15 MG, 2X/DAY
     Route: 048
     Dates: start: 201309
  3. KUVAN [Concomitant]
     Active Substance: SAPROPTERIN DIHYDROCHLORIDE
     Indication: NEUROTRANSMITTER LEVEL ALTERED
     Dosage: 100 MG, 2X/DAY
     Route: 048
     Dates: start: 201309
  4. SINEMET [Suspect]
     Active Substance: CARBIDOPA\LEVODOPA
     Indication: NEUROTRANSMITTER LEVEL ALTERED
     Dosage: 50 MG, 4X/DAY

REACTIONS (5)
  - Trismus [Recovered/Resolved]
  - Hypertonia [Recovered/Resolved]
  - Salivary hypersecretion [Recovered/Resolved]
  - Parkinsonism [Recovered/Resolved]
  - Somnolence [Recovered/Resolved]

NARRATIVE: CASE EVENT DATE: 20161128
